FAERS Safety Report 23175321 (Version 1)
Quarter: 2023Q4

REPORT INFORMATION
  Report Type: Spontaneous
  Country: KR (occurrence: KR)
  Receive Date: 20231113
  Receipt Date: 20231113
  Transmission Date: 20240110
  Serious: Yes (Other)
  Sender: FDA-Public Use
  Company Number: KR-TAKEDA-2023TUS108506

PATIENT

DRUGS (1)
  1. ZEJULA [Suspect]
     Active Substance: NIRAPARIB
     Indication: Ovarian cancer
     Dosage: 200 MG, QD(200 MILLIGRAM, QD)
     Route: 048
     Dates: start: 202308, end: 202309

REACTIONS (3)
  - Thrombosis [Unknown]
  - Cognitive disorder [Unknown]
  - Diarrhoea [Unknown]
